FAERS Safety Report 8797699 (Version 6)
Quarter: 2014Q2

REPORT INFORMATION
  Report Type: Report from Study
  Country: JP (occurrence: JP)
  Receive Date: 20120920
  Receipt Date: 20140611
  Transmission Date: 20141212
  Serious: Yes (Death, Other)
  Sender: FDA-Public Use
  Company Number: PHHY2012JP081555

PATIENT
  Age: 31 Year
  Sex: Male

DRUGS (6)
  1. CERTICAN [Suspect]
     Indication: HEART TRANSPLANT
     Dosage: UNK
     Route: 048
     Dates: start: 20070421
  2. CERTICAN [Suspect]
     Dosage: 1.25 MG, UNK
     Route: 048
     Dates: start: 20090810, end: 20111207
  3. PREDNISOLONE [Concomitant]
     Indication: HEART TRANSPLANT
     Dosage: 2.5 MG, UNK
     Route: 048
  4. PREDNISOLONE [Concomitant]
     Dosage: 2.5 MG, UNK
     Route: 048
     Dates: start: 20090810, end: 20111207
  5. MYCOPHENOLATE MOFETIL [Concomitant]
     Indication: HEART TRANSPLANT
     Dosage: 500 MG, UNK
     Route: 048
  6. MYCOPHENOLATE MOFETIL [Concomitant]
     Dosage: 500 MG, UNK
     Route: 048
     Dates: start: 20090810, end: 20111207

REACTIONS (18)
  - Acute myocardial infarction [Fatal]
  - Coronary artery stenosis [Unknown]
  - Brain natriuretic peptide increased [Unknown]
  - Blood creatinine increased [Unknown]
  - Glomerular filtration rate decreased [Unknown]
  - Blood urea increased [Unknown]
  - Graft loss [Unknown]
  - Bilirubin conjugated increased [Unknown]
  - Blood phosphorus increased [Unknown]
  - Red cell distribution width increased [Unknown]
  - Blood uric acid increased [Unknown]
  - Blood alkaline phosphatase decreased [Unknown]
  - Amylase increased [Unknown]
  - Glycosylated haemoglobin increased [Unknown]
  - Lymphocyte count decreased [Unknown]
  - Gamma-glutamyltransferase increased [Unknown]
  - Haemoglobin decreased [Unknown]
  - Haematocrit decreased [Unknown]
